FAERS Safety Report 6146271-5 (Version None)
Quarter: 2009Q2

REPORT INFORMATION
  Report Type: 
  Country: None (occurrence: None)
  Receive Date: 20090403
  Receipt Date: 20081208
  Transmission Date: 20091009
  Serious: Yes (Other)
  Sender: FDA-Public Use
  Company Number: 46129

PATIENT
  Age: 27 Year
  Sex: Female

DRUGS (1)
  1. ROHTO V. ICE EYE DROPS (SEE LABEL) [Suspect]
     Dates: start: 20070428

REACTIONS (7)
  - ALCOHOL POISONING [None]
  - CHEMICAL BURNS OF EYE [None]
  - CORNEAL ABRASION [None]
  - CORNEAL SCAR [None]
  - CORNEAL TRANSPLANT [None]
  - DRUG ADMINISTRATION ERROR [None]
  - POISONING [None]
